FAERS Safety Report 18147471 (Version 6)
Quarter: 2022Q1

REPORT INFORMATION
  Report Type: Report from Study
  Country: FI (occurrence: FI)
  Receive Date: 20200814
  Receipt Date: 20220128
  Transmission Date: 20220423
  Serious: Yes (Hospitalization, Other)
  Sender: FDA-Public Use
  Company Number: FI-ABBVIE-20K-055-3511750-00

PATIENT
  Sex: Male
  Weight: 62 kg

DRUGS (12)
  1. CARBIDOPA\LEVODOPA [Suspect]
     Active Substance: CARBIDOPA\LEVODOPA
     Indication: Parkinson^s disease
     Dosage: MD 3.0 ML; (CD) 5.7 ML/H DURING DAY 7.30 A.M.; (CD) 2.1 ML/H FROM 7.30 P.M. 24 H
     Route: 050
     Dates: start: 2014, end: 20200729
  2. CARBIDOPA\LEVODOPA [Suspect]
     Active Substance: CARBIDOPA\LEVODOPA
     Dosage: DURING HOSPITALIZATION CD 5.1ML, MD 3.8ML, NIGHT 2.1ML, ED 2.0ML
     Route: 050
     Dates: start: 20200807, end: 20200810
  3. CARBIDOPA\LEVODOPA [Suspect]
     Active Substance: CARBIDOPA\LEVODOPA
     Dosage: AT HOME CD 5.7ML, MD 3.8ML, NIGHT 2.1ML, ED 2.0ML
     Route: 050
     Dates: start: 20200810
  4. SINEMET [Suspect]
     Active Substance: CARBIDOPA\LEVODOPA
     Indication: Product used for unknown indication
     Route: 065
  5. ASPIRIN [Concomitant]
     Active Substance: ASPIRIN
     Indication: Product used for unknown indication
  6. ATORVASTATIN [Concomitant]
     Active Substance: ATORVASTATIN
     Indication: Product used for unknown indication
  7. ZOPICLONE [Concomitant]
     Active Substance: ZOPICLONE
     Indication: Product used for unknown indication
  8. EXELON [Concomitant]
     Active Substance: RIVASTIGMINE TARTRATE
     Indication: Product used for unknown indication
  9. NUTRISON ENERGY [Concomitant]
     Indication: Product used for unknown indication
  10. AMLODIPINE [Concomitant]
     Active Substance: AMLODIPINE BESYLATE
     Indication: Product used for unknown indication
  11. MOVICOL [Concomitant]
     Active Substance: POLYETHYLENE GLYCOL 3350\POTASSIUM CHLORIDE\SODIUM BICARBONATE\SODIUM CHLORIDE
     Indication: Product used for unknown indication
  12. QUETIAPINE FUMARATE [Concomitant]
     Active Substance: QUETIAPINE FUMARATE
     Indication: Sleep disorder

REACTIONS (31)
  - Secretion discharge [Recovering/Resolving]
  - Pulmonary embolism [Recovered/Resolved]
  - Pneumonia aspiration [Recovering/Resolving]
  - Hospitalisation [Recovered/Resolved]
  - Pneumonia [Recovered/Resolved]
  - Incorrect route of product administration [Recovered/Resolved]
  - Device physical property issue [Unknown]
  - Wrong technique in device usage process [Unknown]
  - Malnutrition [Unknown]
  - Device leakage [Recovered/Resolved]
  - Device breakage [Unknown]
  - Device connection issue [Unknown]
  - Device physical property issue [Unknown]
  - General physical condition abnormal [Unknown]
  - Restlessness [Unknown]
  - Burning sensation [Unknown]
  - Inappropriate schedule of product administration [Unknown]
  - Overdose [Unknown]
  - Patient dissatisfaction with treatment [Unknown]
  - Inappropriate schedule of product administration [Unknown]
  - Peripheral coldness [Unknown]
  - Incorrect dose administered [Unknown]
  - Overdose [Unknown]
  - Device use issue [Unknown]
  - Erythema [Unknown]
  - Sleep apnoea syndrome [Unknown]
  - Device dislocation [Unknown]
  - Device dislocation [Not Recovered/Not Resolved]
  - Confusional state [Recovering/Resolving]
  - Pneumonia [Recovered/Resolved]
  - Unevaluable event [Unknown]

NARRATIVE: CASE EVENT DATE: 20180101
